FAERS Safety Report 20076812 (Version 1)
Quarter: 2021Q4

REPORT INFORMATION
  Report Type: Report from Study
  Country: CN (occurrence: CN)
  Receive Date: 20211116
  Receipt Date: 20211116
  Transmission Date: 20220303
  Serious: Yes (Other)
  Sender: FDA-Public Use
  Company Number: CN-BAYER-2021A247148

PATIENT

DRUGS (3)
  1. SORAFENIB [Suspect]
     Active Substance: SORAFENIB
     Indication: Hepatic cancer
     Dosage: 400 MG, BID
     Route: 048
  2. SORAFENIB [Suspect]
     Active Substance: SORAFENIB
     Indication: Hepatic cancer
     Dosage: UNK
  3. CINOBUFAGIN [Suspect]
     Active Substance: CINOBUFAGIN
     Indication: Hepatic cancer
     Dosage: 20-30ML, QD
     Route: 013

REACTIONS (1)
  - Gastrointestinal disorder [None]
